FAERS Safety Report 15611302 (Version 1)
Quarter: 2018Q4

REPORT INFORMATION
  Report Type: Report from Study
  Country: DE (occurrence: DE)
  Receive Date: 20181113
  Receipt Date: 20181113
  Transmission Date: 20190205
  Serious: Yes (Hospitalization)
  Sender: FDA-Public Use
  Company Number: DE-ACCORD-091648

PATIENT
  Sex: Female

DRUGS (4)
  1. METHOTREXATE. [Suspect]
     Active Substance: METHOTREXATE
     Indication: RHEUMATOID ARTHRITIS
     Route: 048
  2. METHOTREXATE. [Suspect]
     Active Substance: METHOTREXATE
     Indication: RHEUMATOID ARTHRITIS
     Dosage: DOSAGE FORM: UNSPECIFIED
     Route: 048
  3. REMICADE [Suspect]
     Active Substance: INFLIXIMAB
     Indication: RHEUMATOID ARTHRITIS
     Dosage: DOSAGE FORM LYOPHILIZED POWDER
     Route: 042
     Dates: start: 20151130
  4. REMICADE [Suspect]
     Active Substance: INFLIXIMAB
     Indication: RHEUMATOID ARTHRITIS
     Dosage: DOSAGE FORM: LYOPHILIZED POWDER
     Route: 042
     Dates: start: 20160606

REACTIONS (8)
  - Raynaud^s phenomenon [Unknown]
  - Vomiting [Unknown]
  - Rheumatoid arthritis [Recovering/Resolving]
  - Anamnestic reaction [Unknown]
  - Urinary tract infection [Recovered/Resolved]
  - Dysphagia [Unknown]
  - Treatment noncompliance [Unknown]
  - Weight decreased [Unknown]

NARRATIVE: CASE EVENT DATE: 20160515
